FAERS Safety Report 8008491-4 (Version None)
Quarter: 2011Q4

REPORT INFORMATION
  Report Type: 
  Country: None (occurrence: None)
  Receive Date: 20111227
  Receipt Date: 20111214
  Transmission Date: 20120403
  Serious: Yes (Other)
  Sender: FDA-Public Use
  Company Number: FI-ROCHE-1022223

PATIENT
  Sex: Male
  Weight: 80 kg

DRUGS (5)
  1. MABTHERA [Suspect]
     Indication: RHEUMATOID ARTHRITIS
     Route: 042
     Dates: start: 20090825, end: 20110401
  2. METHOTREXATE [Suspect]
     Indication: RHEUMATOID ARTHRITIS
     Dates: start: 20091130, end: 20100101
  3. SULFASALAZINE [Concomitant]
     Indication: RHEUMATOID ARTHRITIS
     Dates: end: 20110104
  4. PREDNISOLONE [Concomitant]
     Indication: RHEUMATOID ARTHRITIS
  5. OXIKLORIN [Concomitant]
     Indication: RHEUMATOID ARTHRITIS
     Dates: end: 20100526

REACTIONS (9)
  - EYE DISORDER [None]
  - PULMONARY SARCOIDOSIS [None]
  - HEADACHE [None]
  - ONYCHOMYCOSIS [None]
  - AGRANULOCYTOSIS [None]
  - PULMONARY FIBROSIS [None]
  - BENIGN PROSTATIC HYPERPLASIA [None]
  - NEUTROPENIA [None]
  - WHITE BLOOD CELL COUNT DECREASED [None]
